FAERS Safety Report 8406591-8 (Version None)
Quarter: 2012Q2

REPORT INFORMATION
  Report Type: 
  Country: None (occurrence: None)
  Receive Date: 20120529
  Receipt Date: 20070703
  Transmission Date: 20120825
  Serious: Yes (Other)
  Sender: FDA-Public Use
  Company Number: 02100-JPN-07-0302

PATIENT
  Age: 71 Year
  Sex: Female
  Weight: 64 kg

DRUGS (7)
  1. MOHRUS TAPE L (KETPROFEN) [Concomitant]
  2. DIOVAN [Concomitant]
  3. AMLODIPINE BESYLATE [Concomitant]
  4. PLETAL [Suspect]
     Indication: ARTERIOSCLEROSIS
     Dosage: 50 MG MILLIGRAM(S0, QD, ORAL
     Route: 048
     Dates: start: 20070612, end: 20070619
  5. SHAKUYAKU-KANZO-TO (SHAKUYAKU-KANZO-TO) GRANULES, 2.5G GRAM(S) [Suspect]
     Indication: MUSCLE SPASMS
     Dosage: 2.5 G GRAM(S), QD, ORAL
     Route: 048
     Dates: start: 20070228, end: 20070626
  6. KETOPROFEN [Concomitant]
  7. AMLODIPINE BESYLATE [Concomitant]

REACTIONS (3)
  - WHITE BLOOD CELL COUNT INCREASED [None]
  - RHABDOMYOLYSIS [None]
  - HYPOKALAEMIA [None]
